FAERS Safety Report 17323664 (Version 1)
Quarter: 2020Q1

REPORT INFORMATION
  Report Type: Spontaneous
  Country: US (occurrence: US)
  Receive Date: 20200109
  Receipt Date: 20200109
  Transmission Date: 20200409
  Serious: Yes (Hospitalization)
  Sender: FDA-Public Use
  Company Number: None

PATIENT
  Age: 38 Year
  Sex: Female
  Weight: 59 kg

DRUGS (1)
  1. VEDOLIZUMAB [Suspect]
     Active Substance: VEDOLIZUMAB
     Indication: STEM CELL TRANSPLANT
     Route: 042
     Dates: start: 20191122

REACTIONS (4)
  - Pneumonia [None]
  - Bacterial infection [None]
  - Culture positive [None]
  - Staphylococcal infection [None]

NARRATIVE: CASE EVENT DATE: 20191230
